FAERS Safety Report 6091624-7 (Version None)
Quarter: 2009Q1

REPORT INFORMATION
  Report Type: 
  Country: None (occurrence: None)
  Receive Date: 20090225
  Receipt Date: 20080306
  Transmission Date: 20090719
  Serious: No
  Sender: FDA-Public Use
  Company Number: A0713848A

PATIENT
  Age: 66 Year
  Sex: Female

DRUGS (9)
  1. VALTREX [Suspect]
     Indication: HERPES ZOSTER
     Dosage: 1G THREE TIMES PER DAY
     Route: 048
     Dates: start: 20080221, end: 20080304
  2. ATENOLOL [Concomitant]
  3. FLECAINIDE ACETATE [Concomitant]
  4. EVISTA [Concomitant]
  5. FOSAMAX [Concomitant]
  6. CLARITIN [Concomitant]
  7. MOTRIN [Concomitant]
  8. FLAVONOID [Concomitant]
  9. FLAX SEED OIL [Concomitant]

REACTIONS (3)
  - ABDOMINAL DISCOMFORT [None]
  - DIZZINESS [None]
  - TINNITUS [None]
